FAERS Safety Report 26009595 (Version 2)
Quarter: 2025Q4

REPORT INFORMATION
  Report Type: Spontaneous
  Country: US (occurrence: US)
  Receive Date: 20251107
  Receipt Date: 20251116
  Transmission Date: 20260117
  Serious: No
  Sender: KYOWA
  Company Number: US-KYOWAKIRIN-2025KK021205

PATIENT

DRUGS (6)
  1. CRYSVITA [Suspect]
     Active Substance: BUROSUMAB-TWZA
     Indication: Hereditary hypophosphataemic rickets
     Dosage: 8 MG
     Route: 065
     Dates: start: 20250820
  2. CRYSVITA [Suspect]
     Active Substance: BUROSUMAB-TWZA
     Dosage: 8 MG
     Route: 065
     Dates: start: 20250903
  3. CRYSVITA [Suspect]
     Active Substance: BUROSUMAB-TWZA
     Dosage: 4 MG, 1X/2 WEEKS (0.5 MG/KG/DOSE EVERY 2 WEEKS)
     Route: 065
     Dates: start: 20250927
  4. CRYSVITA [Suspect]
     Active Substance: BUROSUMAB-TWZA
     Dosage: 8 MG, 1X/2 WEEKS  (1MG/KG/DOSE EVERY 2 WEEKS; 7.4KG)
     Route: 065
     Dates: start: 20250806
  5. CRYSVITA [Suspect]
     Active Substance: BUROSUMAB-TWZA
     Dosage: 4 MG, 1X/2 WEEKS  (0.5 MG/KG/DOSE EVERY 2 WEEKS; 8.5KG)
     Route: 065
     Dates: start: 20251001
  6. CRYSVITA [Suspect]
     Active Substance: BUROSUMAB-TWZA
     Dosage: 4 MG
     Route: 065
     Dates: start: 20251015

REACTIONS (1)
  - Off label use [Unknown]
